FAERS Safety Report 7995489-5 (Version None)
Quarter: 2011Q4

REPORT INFORMATION
  Report Type: 
  Country: None (occurrence: None)
  Receive Date: 20111220
  Receipt Date: 20111215
  Transmission Date: 20120403
  Serious: No
  Sender: FDA-Public Use
  Company Number: US-PFIZER INC-2011306325

PATIENT
  Sex: Female

DRUGS (2)
  1. LEXAPRO [Suspect]
     Dosage: 5 MG, UNK
     Dates: start: 20111201
  2. LYRICA [Suspect]
     Indication: NEURALGIA
     Dosage: 75 MG, DAILY
     Route: 048
     Dates: start: 20111211

REACTIONS (4)
  - NEURALGIA [None]
  - INAPPROPRIATE SCHEDULE OF DRUG ADMINISTRATION [None]
  - ANXIETY [None]
  - PARAESTHESIA [None]
